FAERS Safety Report 25784042 (Version 2)
Quarter: 2025Q3

REPORT INFORMATION
  Report Type: Report from Study
  Country: CA (occurrence: CA)
  Receive Date: 20250910
  Receipt Date: 20250918
  Transmission Date: 20251021
  Serious: Yes (Other)
  Sender: APOTEX
  Company Number: CA-APOTEX-2025AP029694

PATIENT
  Age: 78 Year
  Sex: Male

DRUGS (1)
  1. POMALIDOMIDE [Suspect]
     Active Substance: POMALIDOMIDE
     Indication: Plasma cell myeloma
     Dosage: 3 MILLIGRAM, QD, TAKE 1 CAP DAILY FOR 21 DAYS THEN STOP FOR 7 DAYS
     Route: 048
     Dates: start: 20250612, end: 2025

REACTIONS (4)
  - Pulmonary oedema [Unknown]
  - Pulmonary thrombosis [Unknown]
  - Illness [Unknown]
  - Off label use [Unknown]

NARRATIVE: CASE EVENT DATE: 20250612
